FAERS Safety Report 14218634 (Version 1)
Quarter: 2017Q4

REPORT INFORMATION
  Report Type: Spontaneous
  Country: US (occurrence: US)
  Receive Date: 20171123
  Receipt Date: 20171123
  Transmission Date: 20180321
  Serious: Yes (Death, Hospitalization)
  Sender: FDA-Public Use
  Company Number: US-ALLERGAN-1765602US

PATIENT
  Age: 78 Year
  Sex: Female

DRUGS (2)
  1. DONEPEZIL. [Concomitant]
     Active Substance: DONEPEZIL
  2. NAMENDA [Suspect]
     Active Substance: MEMANTINE HYDROCHLORIDE
     Indication: DEMENTIA
     Route: 065

REACTIONS (2)
  - Sepsis [Fatal]
  - Dehydration [Unknown]
